FAERS Safety Report 19264663 (Version 1)
Quarter: 2021Q2

REPORT INFORMATION
  Report Type: Spontaneous
  Country: US (occurrence: US)
  Receive Date: 20210517
  Receipt Date: 20210517
  Transmission Date: 20210717
  Serious: Yes (Life-Threatening, Hospitalization)
  Sender: FDA-Public Use
  Company Number: US-MYLANLABS-2021M1027865

PATIENT
  Age: 43 Year
  Sex: Female

DRUGS (9)
  1. HALOPERIDOL. [Suspect]
     Active Substance: HALOPERIDOL
     Indication: AGITATION
  2. LORAZEPAM. [Suspect]
     Active Substance: LORAZEPAM
     Indication: OVERDOSE
     Dosage: 10 MILLIGRAM (OVER 3 H)
     Route: 065
  3. DIPHENHYDRAMINE. [Suspect]
     Active Substance: DIPHENHYDRAMINE
     Indication: OVERDOSE
     Dosage: 50 MILLIGRAM (OVER 3 H)
     Route: 065
  4. HALOPERIDOL. [Suspect]
     Active Substance: HALOPERIDOL
     Indication: OVERDOSE
     Dosage: 10 MILLIGRAM (OVER 3 H)
     Route: 065
  5. BUPRENORPHINE. [Suspect]
     Active Substance: BUPRENORPHINE
     Indication: OVERDOSE
     Dosage: 1.2 MILLIGRAM (OVER 3 H)
     Route: 042
  6. DIPHENHYDRAMINE. [Suspect]
     Active Substance: DIPHENHYDRAMINE
     Indication: AGITATION
  7. NALOXONE [Suspect]
     Active Substance: NALOXONE
     Indication: DRUG ABUSE
     Dosage: RECEIVED 24MG OF...
     Route: 045
  8. BUPRENORPHINE. [Suspect]
     Active Substance: BUPRENORPHINE
     Indication: AGITATION
  9. LORAZEPAM. [Suspect]
     Active Substance: LORAZEPAM
     Indication: AGITATION

REACTIONS (6)
  - Agitation [Recovered/Resolved]
  - Tachypnoea [Recovered/Resolved]
  - Tachycardia [Recovered/Resolved]
  - Drug withdrawal syndrome [Recovered/Resolved]
  - Overdose [Recovered/Resolved]
  - Drug ineffective [Unknown]
